FAERS Safety Report 20603340 (Version 1)
Quarter: 2022Q1

REPORT INFORMATION
  Report Type: Spontaneous
  Country: GB (occurrence: GB)
  Receive Date: 20220316
  Receipt Date: 20220316
  Transmission Date: 20220424
  Serious: Yes (Disabling, Other)
  Sender: FDA-Public Use
  Company Number: GB-MHRA-MED-202203041753078120-CM764

PATIENT
  Age: 76 Year
  Sex: Female

DRUGS (1)
  1. BEVACIZUMAB [Suspect]
     Active Substance: BEVACIZUMAB
     Indication: Fallopian tube cancer stage III
     Dosage: UNK
     Dates: start: 202103

REACTIONS (6)
  - Pulmonary hypertension [Not Recovered/Not Resolved]
  - Electrocardiogram T wave inversion [Unknown]
  - Tricuspid valve incompetence [Unknown]
  - Right atrial dilatation [Unknown]
  - QRS axis abnormal [Unknown]
  - Dilatation ventricular [Unknown]

NARRATIVE: CASE EVENT DATE: 20220201
